FAERS Safety Report 6525821-0 (Version None)
Quarter: 2010Q1

REPORT INFORMATION
  Report Type: 
  Country: None (occurrence: None)
  Receive Date: 20100104
  Receipt Date: 20091225
  Transmission Date: 20100710
  Serious: Yes (Life-Threatening, Hospitalization, Disabling, Other)
  Sender: FDA-Public Use
  Company Number: B0602504A

PATIENT
  Sex: Female

DRUGS (1)
  1. CEFUROXIME AXETIL [Suspect]
     Indication: URINARY TRACT INFECTION
     Dosage: 500MG PER DAY
     Dates: start: 20091008

REACTIONS (10)
  - ANGIOEDEMA [None]
  - ARTHRALGIA [None]
  - CHILLS [None]
  - DISABILITY [None]
  - HYPERSENSITIVITY [None]
  - MYALGIA [None]
  - PRODUCT QUALITY ISSUE [None]
  - SERUM SICKNESS-LIKE REACTION [None]
  - URTICARIA [None]
  - VOMITING [None]
